FAERS Safety Report 6074610-2 (Version None)
Quarter: 2009Q1

REPORT INFORMATION
  Report Type: 
  Country: None (occurrence: None)
  Receive Date: 20090211
  Receipt Date: 20090203
  Transmission Date: 20090719
  Serious: Yes (Hospitalization)
  Sender: FDA-Public Use
  Company Number: GB-BAUSCH-2009BL000489

PATIENT
  Age: 78 Year
  Sex: Female

DRUGS (4)
  1. PREDNISOLONE [Suspect]
     Indication: TEMPORAL ARTERITIS
     Route: 048
  2. METHYLPREDNISOLONE 4MG TAB [Suspect]
     Indication: TEMPORAL ARTERITIS
     Route: 042
  3. ALENDRONIC ACID [Concomitant]
     Indication: TEMPORAL ARTERITIS
     Route: 048
  4. RANITIDINE [Concomitant]
     Indication: TEMPORAL ARTERITIS
     Route: 048

REACTIONS (2)
  - DIABETES MELLITUS [None]
  - PANCREATITIS ACUTE [None]
